FAERS Safety Report 11793837 (Version 1)
Quarter: 2015Q4

REPORT INFORMATION
  Report Type: Spontaneous
  Country: US (occurrence: None)
  Receive Date: 20151201
  Receipt Date: 20151201
  Transmission Date: 20160305
  Serious: No
  Sender: FDA-Public Use
  Company Number: None

PATIENT
  Age: 81 Year
  Sex: Male
  Weight: 58.97 kg

DRUGS (8)
  1. ETHAMBUTOL - MYAMBUTOL [Concomitant]
  2. FINASTERIDE. [Concomitant]
     Active Substance: FINASTERIDE
  3. LEVOTHYROXINE. [Concomitant]
     Active Substance: LEVOTHYROXINE
  4. CARBIDOPA-LEVODOPA [Concomitant]
     Active Substance: CARBIDOPA\LEVODOPA
  5. CLONAZEPAM. [Concomitant]
     Active Substance: CLONAZEPAM
  6. RIFAMPIN. [Suspect]
     Active Substance: RIFAMPIN
     Indication: MYCOBACTERIUM AVIUM COMPLEX INFECTION
     Dosage: BY MOUTH; 2 CAPSULES
     Route: 048
     Dates: start: 201205, end: 201307
  7. AZITHROMYCIN - ZITHROMAX [Concomitant]
  8. MULTIVITAMIN [Concomitant]
     Active Substance: VITAMINS

REACTIONS (8)
  - Cough [None]
  - Insomnia [None]
  - Respiratory tract congestion [None]
  - Weight decreased [None]
  - Paraesthesia [None]
  - Burning sensation [None]
  - Fatigue [None]
  - Paranoia [None]

NARRATIVE: CASE EVENT DATE: 201205
